FAERS Safety Report 25943805 (Version 1)
Quarter: 2025Q4

REPORT INFORMATION
  Report Type: Spontaneous
  Country: JP (occurrence: JP)
  Receive Date: 20251021
  Receipt Date: 20251021
  Transmission Date: 20260117
  Serious: Yes (Life-Threatening, Hospitalization, Other)
  Sender: PFIZER
  Company Number: JP-PFIZER INC-PV202500100167

PATIENT
  Age: 28 Year
  Sex: Male
  Weight: 65 kg

DRUGS (10)
  1. HYDROCORTISONE SODIUM SUCCINATE [Suspect]
     Active Substance: HYDROCORTISONE SODIUM SUCCINATE
     Indication: Hyperthermia malignant
     Dosage: 1000 MG
  2. HYDROCORTISONE SODIUM SUCCINATE [Suspect]
     Active Substance: HYDROCORTISONE SODIUM SUCCINATE
     Dosage: 1500 MG
  3. PROCAINAMIDE HYDROCHLORIDE [Suspect]
     Active Substance: PROCAINAMIDE HYDROCHLORIDE
     Indication: Hyperthermia malignant
     Dosage: 200 MG
  4. PROCAINAMIDE HYDROCHLORIDE [Suspect]
     Active Substance: PROCAINAMIDE HYDROCHLORIDE
     Dosage: 1700 MG
  5. MEYLON [Concomitant]
     Active Substance: SODIUM BICARBONATE
     Indication: Hyperthermia malignant
     Dosage: 200 ML
  6. FUROSEMIDE [Concomitant]
     Active Substance: FUROSEMIDE
     Indication: Hyperthermia malignant
     Dosage: 120 MG
  7. CARNIGEN [OXILOFRINE HYDROCHLORIDE] [Concomitant]
     Indication: Hyperthermia malignant
     Dosage: UNK
  8. DOPAMINE [Concomitant]
     Active Substance: DOPAMINE HYDROCHLORIDE
     Indication: Hyperthermia malignant
     Dosage: 50 MG
  9. NITROUS OXIDE [Concomitant]
     Active Substance: NITROUS OXIDE
     Indication: Anaesthesia
     Dosage: UNK
  10. PANCURONIUM BROMIDE [Concomitant]
     Active Substance: PANCURONIUM BROMIDE
     Indication: Muscle contractions involuntary
     Dosage: 4 MG

REACTIONS (2)
  - Drug ineffective for unapproved indication [Unknown]
  - Off label use [Unknown]
